FAERS Safety Report 5703703-1 (Version None)
Quarter: 2008Q2

REPORT INFORMATION
  Report Type: 
  Country: None (occurrence: None)
  Receive Date: 20080413
  Receipt Date: 20080408
  Transmission Date: 20081010
  Serious: Yes (Hospitalization)
  Sender: FDA-Public Use
  Company Number: PHEH2008US03022

PATIENT
  Age: 47 Year
  Sex: Male
  Weight: 73.015 kg

DRUGS (2)
  1. SANDOSTATIN [Suspect]
     Indication: DIARRHOEA
     Dosage: 50 UG, TID
     Route: 042
  2. DRUG THERAPY NOS [Concomitant]

REACTIONS (2)
  - CHOLECYSTECTOMY [None]
  - VOMITING [None]
